FAERS Safety Report 9090529 (Version 2)
Quarter: 2013Q1

REPORT INFORMATION
  Report Type: Report from Study
  Country: US (occurrence: US)
  Receive Date: 20130131
  Receipt Date: 20130213
  Transmission Date: 20140127
  Serious: Yes (Hospitalization, Other)
  Sender: FDA-Public Use
  Company Number: US-ROCHE-1185926

PATIENT
  Age: 72 Year
  Sex: Male

DRUGS (1)
  1. CELLCEPT [Suspect]
     Indication: HEART TRANSPLANT
     Route: 048

REACTIONS (3)
  - Pneumonia [Recovering/Resolving]
  - Cardiac disorder [Unknown]
  - Dyspnoea [Recovering/Resolving]
